FAERS Safety Report 21916279 (Version 3)
Quarter: 2023Q2

REPORT INFORMATION
  Report Type: Report from Study
  Country: CA (occurrence: CA)
  Receive Date: 20230126
  Receipt Date: 20230510
  Transmission Date: 20230722
  Serious: Yes (Hospitalization, Other)
  Sender: FDA-Public Use
  Company Number: CA-HLS-202300097

PATIENT
  Age: 36 Year
  Sex: Male

DRUGS (21)
  1. CLOZARIL [Suspect]
     Active Substance: CLOZAPINE
     Indication: Product used for unknown indication
     Dosage: 100 MG TID AND QHS
     Route: 048
     Dates: start: 19950921, end: 202212
  2. CLOZARIL [Suspect]
     Active Substance: CLOZAPINE
     Indication: Product used for unknown indication
     Dosage: FILLED ON 03-JUL-1996 AS: 225MG TWICE DAILY THEN,?FILLED ON 13-AUG-1995 AS: 200MG TWICE DAILY THEN,
     Route: 065
     Dates: end: 20230430
  3. CLOZARIL [Suspect]
     Active Substance: CLOZAPINE
     Indication: Product used for unknown indication
     Dosage: ON 23-FEB-2023: 125 MG DAILY DOSE (25MG TABLET QAM AND 100MG TABLET EACH NIGHT AT BEDTIME)
     Route: 048
     Dates: end: 20230430
  4. BENZTROPINE [Concomitant]
     Active Substance: BENZTROPINE
     Indication: Product used for unknown indication
     Dosage: 2 MG, ORAL, BID
     Route: 048
  5. PIMOZIDE [Concomitant]
     Active Substance: PIMOZIDE
     Indication: Product used for unknown indication
     Dosage: 4 MG TWICE DAILY
     Route: 048
  6. PRIMIDONE [Concomitant]
     Active Substance: PRIMIDONE
     Indication: Product used for unknown indication
     Dosage: 250 MG ORAL BID
     Route: 048
  7. PHENYTOIN [Concomitant]
     Active Substance: PHENYTOIN
     Indication: Product used for unknown indication
     Dosage: 200 MG ORAL BID
     Route: 048
  8. LEVOTHYROXINE [Concomitant]
     Active Substance: LEVOTHYROXINE
     Indication: Product used for unknown indication
     Dosage: 0.1 MG DAILY
     Route: 048
  9. CLONAZEPAM [Concomitant]
     Active Substance: CLONAZEPAM
     Indication: Product used for unknown indication
     Dosage: 0.5 MG IN THE AM, 1 MG IN THE AFTERNOON, 2 MG AT BEDTIME
     Route: 065
  10. CLONAZEPAM [Concomitant]
     Active Substance: CLONAZEPAM
     Indication: Product used for unknown indication
     Dosage: 0.5 MG TWICE DAILY
     Route: 048
  11. SERTRALINE [Concomitant]
     Active Substance: SERTRALINE HYDROCHLORIDE
     Indication: Product used for unknown indication
     Dosage: 200 MG IN THE MORNING
     Route: 048
  12. VITAMIN D [Concomitant]
     Active Substance: VITAMIN D NOS
     Indication: Product used for unknown indication
     Dosage: 1000IU, ONE TABLET ONCE DAILY
     Route: 065
  13. VITAMIN B12 [Concomitant]
     Active Substance: CYANOCOBALAMIN
     Indication: Product used for unknown indication
     Dosage: 1000MCG, ONE TABLET ONCE DAILY
     Route: 065
  14. ROSUVASTATIN [Concomitant]
     Active Substance: ROSUVASTATIN
     Indication: Product used for unknown indication
     Dosage: 5MG, ONE TABLET ONCE DAILY AT SUPPER
     Route: 065
  15. MAGNESIUM OXIDE [Concomitant]
     Active Substance: MAGNESIUM OXIDE
     Indication: Product used for unknown indication
     Dosage: 420MG, ONE TABLET TWICE DAILY
     Route: 065
  16. BISOPROLOL [Concomitant]
     Active Substance: BISOPROLOL
     Indication: Product used for unknown indication
     Dosage: 1.25MG (1/4 OF 5MG TABLET) ONCE DAILY
     Route: 065
  17. SENNA [Concomitant]
     Active Substance: SENNA LEAF\SENNOSIDES\SENNOSIDES A AND B
     Indication: Product used for unknown indication
     Dosage: 8.6MG, ONE TABLET ONCE DAILY
     Route: 065
  18. ACETAMINOPHEN [Concomitant]
     Active Substance: ACETAMINOPHEN
     Indication: Product used for unknown indication
     Dosage: 325MG, TWO TABLETS (650MG) EVERY 6 HOURS AS REQUIRED; FILL DATE: 06-APR-2023
     Route: 065
  19. ACETAMINOPHEN [Concomitant]
     Active Substance: ACETAMINOPHEN
     Indication: Product used for unknown indication
     Dosage: 500MG (TAKE 2 TABLETS EVERY 6 HOURS AS REQUIRED); FILL DATE 03-MAR-2021
     Route: 065
  20. Betaderm Lotion 0.1% [Concomitant]
     Indication: Product used for unknown indication
     Dosage: APPLY TO AFFECTED AREA(S) TUESDAY AND FRIDAY (NOT FILLED)
     Route: 065
  21. NIZORAL [Concomitant]
     Active Substance: KETOCONAZOLE
     Indication: Product used for unknown indication
     Dosage: APPLY ON TUESDAY AND FRIDAY (NOT FILLED)
     Route: 065

REACTIONS (18)
  - Arrhythmia [Unknown]
  - Pulmonary embolism [Unknown]
  - Prescribed overdose [Unknown]
  - Congenital spinal stenosis [Unknown]
  - Deep vein thrombosis [Unknown]
  - Depression [Unknown]
  - Hallucination, auditory [Recovering/Resolving]
  - Alcohol abuse [Unknown]
  - Fall [Unknown]
  - Head injury [Unknown]
  - Alcohol withdrawal syndrome [Unknown]
  - Electrocardiogram T wave abnormal [Unknown]
  - Ischaemia [Unknown]
  - Central cord syndrome [Unknown]
  - Electrocardiogram QT prolonged [Not Recovered/Not Resolved]
  - Schizoaffective disorder [Unknown]
  - Seborrhoeic dermatitis [Unknown]
  - Ventricular tachycardia [Not Recovered/Not Resolved]

NARRATIVE: CASE EVENT DATE: 19971223
